FAERS Safety Report 5645007-1 (Version None)
Quarter: 2008Q1

REPORT INFORMATION
  Report Type: 
  Country: None (occurrence: None)
  Receive Date: 20080229
  Receipt Date: 20080220
  Transmission Date: 20080703
  Serious: Yes (Hospitalization, Other)
  Sender: FDA-Public Use
  Company Number: US-ELI_LILLY_AND_COMPANY-US200802004928

PATIENT
  Sex: Female

DRUGS (8)
  1. HUMALOG MIX 75/25 [Suspect]
     Dosage: UNK, AS NEEDED
  2. HUMALOG [Suspect]
     Dates: start: 20060101
  3. ATENOLOL [Concomitant]
     Indication: TACHYCARDIA
     Dosage: 25 MG, DAILY (1/D)
  4. ACTIGALL [Concomitant]
     Dosage: 300 MG, 2/D
  5. PANCREASE [Concomitant]
  6. NEXIUM [Concomitant]
     Dosage: 40 MG, DAILY (1/D)
  7. DEXAMETHASONE TAB [Concomitant]
  8. SLO-MAG [Concomitant]

REACTIONS (13)
  - BLOOD BILIRUBIN INCREASED [None]
  - BLOOD GLUCOSE INCREASED [None]
  - CARDIAC DISORDER [None]
  - COGNITIVE DISORDER [None]
  - FLATULENCE [None]
  - MAGNESIUM DEFICIENCY [None]
  - PALPITATIONS [None]
  - PANCREATIC CARCINOMA [None]
  - PORTAL VEIN OCCLUSION [None]
  - STENT OCCLUSION [None]
  - STENT-GRAFT MALFUNCTION [None]
  - ULCER HAEMORRHAGE [None]
  - WEIGHT DECREASED [None]
